FAERS Safety Report 21618233 (Version 3)
Quarter: 2023Q2

REPORT INFORMATION
  Report Type: Report from Study
  Country: US (occurrence: US)
  Receive Date: 20221119
  Receipt Date: 20230406
  Transmission Date: 20230722
  Serious: No
  Sender: FDA-Public Use
  Company Number: US-ABBVIE-4172255

PATIENT
  Age: 60 Year
  Sex: Female

DRUGS (4)
  1. SKYRIZI [Suspect]
     Active Substance: RISANKIZUMAB-RZAA
     Indication: Psoriasis
     Dosage: WEEK 0?ONE IN ONCE FREQUENCY
     Route: 058
     Dates: start: 20221014, end: 20221014
  2. SKYRIZI [Suspect]
     Active Substance: RISANKIZUMAB-RZAA
     Dosage: WEEK 4?ONE IN ONCE FREQUENCY
     Route: 058
     Dates: start: 20221111, end: 20221111
  3. SKYRIZI [Suspect]
     Active Substance: RISANKIZUMAB-RZAA
     Dosage: WEEK 12
     Route: 058
     Dates: start: 20221111
  4. COVID-19 VACCINE NOS [Suspect]
     Active Substance: COVID-19 VACCINE NOS
     Indication: COVID-19 immunisation
     Dosage: ONCE
     Route: 030
     Dates: start: 20221019

REACTIONS (10)
  - Burning sensation [Recovered/Resolved]
  - Alopecia [Not Recovered/Not Resolved]
  - COVID-19 [Unknown]
  - Pain [Recovered/Resolved]
  - Erythema [Unknown]
  - Malaise [Unknown]
  - Pruritus [Recovered/Resolved]
  - Tooth extraction [Unknown]
  - Influenza [Unknown]
  - Sneezing [Unknown]

NARRATIVE: CASE EVENT DATE: 20221018
